FAERS Safety Report 9207186 (Version 2)
Quarter: 2014Q1

REPORT INFORMATION
  Report Type: Spontaneous
  Country: US (occurrence: US)
  Receive Date: 20130403
  Receipt Date: 20140203
  Transmission Date: 20141002
  Serious: Yes (Other)
  Sender: FDA-Public Use
  Company Number: US-BAYER-2013-039633

PATIENT
  Age: 26 Year
  Sex: Female

DRUGS (5)
  1. YAZ [Suspect]
     Dosage: UNK
     Dates: start: 200601, end: 200605
  2. YASMIN [Suspect]
     Dosage: UNK
     Dates: start: 200601, end: 200605
  3. SUCRALFATE [Concomitant]
     Dosage: 1 G, UNK
     Dates: start: 20060518
  4. PROTONIX [Concomitant]
     Dosage: 40 MG, UNK
     Dates: start: 20051117, end: 20060521
  5. ZOFRAN [Concomitant]
     Dosage: 8 MG, UNK
     Dates: start: 20060518, end: 20060801

REACTIONS (6)
  - Cholecystitis chronic [None]
  - Biliary dyskinesia [None]
  - Gallbladder disorder [None]
  - Injury [None]
  - Pain [None]
  - Emotional distress [None]
